FAERS Safety Report 8306506-7 (Version None)
Quarter: 2012Q2

REPORT INFORMATION
  Report Type: 
  Country: None (occurrence: None)
  Receive Date: 20120424
  Receipt Date: 20120411
  Transmission Date: 20120825
  Serious: No
  Sender: FDA-Public Use
  Company Number: US-BIOGENIDEC-2012BI012642

PATIENT
  Age: 31 Year
  Sex: Female

DRUGS (2)
  1. AVONEX [Suspect]
     Indication: MULTIPLE SCLEROSIS
     Route: 030
     Dates: start: 20110902
  2. COPAXONE [Concomitant]

REACTIONS (4)
  - PAIN IN EXTREMITY [None]
  - MUSCLE SPASMS [None]
  - INJECTION SITE PAIN [None]
  - CONTUSION [None]
